FAERS Safety Report 5649038-7 (Version None)
Quarter: 2008Q1

REPORT INFORMATION
  Report Type: 
  Country: None (occurrence: None)
  Receive Date: 20080229
  Receipt Date: 20080214
  Transmission Date: 20080703
  Serious: Yes (Death)
  Sender: FDA-Public Use
  Company Number: 2008US000524

PATIENT
  Age: 50 Year
  Sex: Female

DRUGS (10)
  1. AMBISOME [Suspect]
     Indication: MUCORMYCOSIS
     Dosage: 400 MG, UID/QD, IV NOS; 800 MG, UID/QD, IV NOS; 250 MG, UID/QD, IV NOS
     Route: 042
     Dates: start: 20071119
  2. AMBISOME [Suspect]
     Indication: MUCORMYCOSIS
     Dosage: 400 MG, UID/QD, IV NOS; 800 MG, UID/QD, IV NOS; 250 MG, UID/QD, IV NOS
     Route: 042
     Dates: start: 20080101
  3. IMIPENEM (IMIPENEM) [Concomitant]
  4. CEFTAZIDIME PENTAHYDRATE [Concomitant]
  5. COLIMYCINE (COLISTIN MESILATE SODIUM) [Concomitant]
  6. AZACTAM [Concomitant]
  7. CYCLOPHOSPHAMIDE [Concomitant]
  8. METHOTREXATE [Concomitant]
  9. VINDESINE (VINDESINE) [Concomitant]
  10. DOXORUBICIN HCL [Concomitant]

REACTIONS (7)
  - CEREBRAL ISCHAEMIA [None]
  - HEPATIC INFARCTION [None]
  - HEPATIC ISCHAEMIA [None]
  - HEPATIC NECROSIS [None]
  - PSEUDOMONAS INFECTION [None]
  - RENAL FAILURE [None]
  - VENOUS THROMBOSIS [None]
